FAERS Safety Report 23721263 (Version 2)
Quarter: 2024Q2

REPORT INFORMATION
  Report Type: Report from Study
  Country: US (occurrence: US)
  Receive Date: 20240409
  Receipt Date: 20240521
  Transmission Date: 20240716
  Serious: Yes (Other)
  Sender: FDA-Public Use
  Company Number: US-UCBSA-2024003644

PATIENT
  Sex: Male
  Weight: 73 kg

DRUGS (1)
  1. BIMEKIZUMAB [Suspect]
     Active Substance: BIMEKIZUMAB
     Indication: Product used for unknown indication
     Dosage: 320 MILLIGRAM, EV 4 WEEKS
     Route: 058
     Dates: start: 20231208

REACTIONS (6)
  - Oesophageal candidiasis [Unknown]
  - Gastrooesophageal reflux disease [Recovered/Resolved]
  - Oral candidiasis [Unknown]
  - Therapy interrupted [Unknown]
  - Insurance issue [Unknown]
  - Glossitis [Unknown]

NARRATIVE: CASE EVENT DATE: 20240101
